FAERS Safety Report 19972244 (Version 1)
Quarter: 2021Q4

REPORT INFORMATION
  Report Type: Spontaneous
  Country: RU (occurrence: RU)
  Receive Date: 20211019
  Receipt Date: 20211019
  Transmission Date: 20220303
  Serious: Yes (Other)
  Sender: FDA-Public Use
  Company Number: 2021A770510

PATIENT
  Sex: Female

DRUGS (2)
  1. GEFITINIB [Suspect]
     Active Substance: GEFITINIB
     Indication: Lung neoplasm malignant
     Route: 048
     Dates: start: 201612, end: 201710
  2. AFATINIB [Concomitant]
     Active Substance: AFATINIB
     Dosage: AT A STANDARD DOSE OF 40 MG
     Dates: start: 201710

REACTIONS (1)
  - Malignant neoplasm progression [Unknown]
